FAERS Safety Report 6084696-7 (Version None)
Quarter: 2009Q1

REPORT INFORMATION
  Report Type: 
  Country: None (occurrence: None)
  Receive Date: 20090219
  Receipt Date: 20090212
  Transmission Date: 20090719
  Serious: Yes (Other)
  Sender: FDA-Public Use
  Company Number: DE-MERCK-0901DEU00086

PATIENT
  Age: 65 Year
  Sex: Female

DRUGS (5)
  1. FOSAMAX [Suspect]
     Indication: OSTEOMALACIA
     Route: 048
     Dates: start: 20020101, end: 20070101
  2. FOSAMAX [Suspect]
     Route: 048
     Dates: start: 20081101, end: 20081201
  3. CALCIUM (UNSPECIFIED) AND VITAMIN D (UNSPECIFIED) [Concomitant]
     Route: 065
  4. IODINE [Concomitant]
     Route: 065
  5. LETROZOLE [Suspect]
     Route: 065

REACTIONS (7)
  - DRUG INTERACTION [None]
  - HERPES ZOSTER [None]
  - PAIN [None]
  - SPINAL FRACTURE [None]
  - STEVENS-JOHNSON SYNDROME [None]
  - STOMATITIS [None]
  - SWELLING [None]
